FAERS Safety Report 4776637-7 (Version None)
Quarter: 2005Q3

REPORT INFORMATION
  Report Type: 
  Country: None (occurrence: None)
  Receive Date: 20050923
  Receipt Date: 20050610
  Transmission Date: 20060218
  Serious: Yes (Hospitalization)
  Sender: FDA-Public Use
  Company Number: 2005AP03259

PATIENT
  Age: 8 Month
  Sex: Female
  Weight: 8 kg

DRUGS (7)
  1. MEROPENEM [Suspect]
     Indication: PNEUMONIA
     Route: 041
     Dates: start: 20050105, end: 20050107
  2. DEPAKENE [Suspect]
     Route: 048
     Dates: start: 20040809
  3. NITRAZEPAM [Concomitant]
     Route: 048
     Dates: start: 20041008
  4. BIOFERMIN [Concomitant]
     Route: 048
     Dates: start: 20041229
  5. FLUMARIN [Concomitant]
  6. ROCEPHIN [Concomitant]
  7. FLOMOX [Concomitant]

REACTIONS (3)
  - CONVULSION [None]
  - DRUG INTERACTION [None]
  - DRUG LEVEL DECREASED [None]
